FAERS Safety Report 7597276-9 (Version None)
Quarter: 2011Q3

REPORT INFORMATION
  Report Type: 
  Country: None (occurrence: None)
  Receive Date: 20110708
  Receipt Date: 20110209
  Transmission Date: 20111222
  Serious: No
  Sender: FDA-Public Use
  Company Number: US-GLAXOSMITHKLINE-A0912691A

PATIENT
  Age: 11 Year
  Sex: Male

DRUGS (2)
  1. FLOVENT [Suspect]
     Indication: ASTHMA
     Dosage: 110UKM TWICE PER DAY
     Route: 055
  2. NO CONCURRENT MEDICATION [Concomitant]

REACTIONS (5)
  - TONSILLAR DISORDER [None]
  - PAIN IN EXTREMITY [None]
  - SINUSITIS [None]
  - OROPHARYNGEAL PAIN [None]
  - SINUS HEADACHE [None]
